FAERS Safety Report 18105360 (Version 2)
Quarter: 2020Q3

REPORT INFORMATION
  Report Type: Spontaneous
  Country: PT (occurrence: PT)
  Receive Date: 20200804
  Receipt Date: 20200905
  Transmission Date: 20201103
  Serious: Yes (Other)
  Sender: FDA-Public Use
  Company Number: PT-TEVA-2020-PT-1808239

PATIENT
  Age: 78 Year
  Sex: Female

DRUGS (11)
  1. LORAZEPAM. [Concomitant]
     Active Substance: LORAZEPAM
     Indication: SLEEP DISORDER
     Dosage: 1 DOSAGE FORMS DAILY; AT BEDTIME
  2. SINVASTATINA + EZETIMIBA TOLIFE [Concomitant]
     Indication: CARDIOVASCULAR DISORDER
     Dosage: 1 DOSAGE FORMS DAILY; 1 TABLET AT DINNER
  3. DICLOFENAC [Concomitant]
     Active Substance: DICLOFENAC
     Indication: ARTHRALGIA
     Dosage: SOS. UP TO EVERY 12 HOURS
  4. RAMIPRIL GP [Concomitant]
     Indication: CARDIOVASCULAR DISORDER
     Dosage: 10 MILLIGRAM DAILY; 1 TABLET AT BEDTIME
  5. FUROSEMIDA SANDOZ 40 MG COMPRIMIDOS [Concomitant]
     Active Substance: FUROSEMIDE
     Indication: CARDIOVASCULAR DISORDER
     Dosage: 1 TABLET AT LUNCH + 1/2 TABLET AT DINNER
  6. ESPIRONOLACTONA ALTER [Concomitant]
     Active Substance: SPIRONOLACTONE
     Indication: CARDIOVASCULAR DISORDER
     Dosage: 25 MILLIGRAM DAILY; 1 TABLET AT LUNCH
  7. COLECALCIFEROL [Concomitant]
     Active Substance: CHOLECALCIFEROL
     Dosage: 2 GTT DAILY; 2 DROPS A DAY
  8. BETASERC [Concomitant]
     Active Substance: BETAHISTINE
     Indication: VERTIGO
  9. CARVEDILOL TEVA 25 MG COMPRIMIDOS [Suspect]
     Active Substance: CARVEDILOL
     Indication: CARDIOVASCULAR DISORDER
     Dosage: 1 TABLET FOR BREAKFAST AND HALF FOR DINNER,
     Route: 048
     Dates: start: 20200229, end: 20200710
  10. PANTOPRAZOLE [Concomitant]
     Active Substance: PANTOPRAZOLE
     Dosage: 20 MILLIGRAM DAILY; 1 FASTING TABLET
  11. APIXABAN [Concomitant]
     Active Substance: APIXABAN
     Indication: CARDIOVASCULAR DISORDER
     Dosage: 10 MILLIGRAM DAILY; 1 TABLET EVERY 12 HOURS

REACTIONS (12)
  - Palpitations [Unknown]
  - Diarrhoea [Unknown]
  - Vomiting [Unknown]
  - Orthostatic hypotension [Unknown]
  - Fluid retention [Unknown]
  - Vertigo [Unknown]
  - Abdominal pain upper [Unknown]
  - Dizziness [Unknown]
  - Abdominal rigidity [Unknown]
  - Headache [Unknown]
  - Vision blurred [Unknown]
  - Abdominal distension [Unknown]

NARRATIVE: CASE EVENT DATE: 20200229
